FAERS Safety Report 6682321-5 (Version None)
Quarter: 2010Q2

REPORT INFORMATION
  Report Type: 
  Country: None (occurrence: None)
  Receive Date: 20100414
  Receipt Date: 20100414
  Transmission Date: 20101027
  Serious: Yes (Hospitalization)
  Sender: FDA-Public Use
  Company Number: None

PATIENT
  Age: 77 Year
  Sex: Male
  Weight: 78.5 kg

DRUGS (1)
  1. TERAZOSIN HCL [Suspect]
     Dosage: 10 MG AT BEDTIME PO
     Route: 048
     Dates: start: 20090821, end: 20091219

REACTIONS (1)
  - BRADYCARDIA [None]
